FAERS Safety Report 5811137-4 (Version None)
Quarter: 2008Q3

REPORT INFORMATION
  Report Type: 
  Country: None (occurrence: None)
  Receive Date: 20080716
  Receipt Date: 20080709
  Transmission Date: 20090109
  Serious: Yes (Other)
  Sender: FDA-Public Use
  Company Number: GB-TEVA-174207ISR

PATIENT
  Sex: Female

DRUGS (1)
  1. DOXYCYCLINE HCL [Suspect]
     Indication: MALARIA PROPHYLAXIS

REACTIONS (2)
  - PHOTOSENSITIVITY REACTION [None]
  - PLASMODIUM FALCIPARUM INFECTION [None]
